APPROVED DRUG PRODUCT: DOXYCYCLINE
Active Ingredient: DOXYCYCLINE
Strength: EQ 100MG BASE
Dosage Form/Route: CAPSULE;ORAL
Application: A209396 | Product #003 | TE Code: AB
Applicant: DR REDDYS LABORATORIES SA
Approved: Sep 29, 2017 | RLD: No | RS: No | Type: RX